FAERS Safety Report 18231264 (Version 4)
Quarter: 2021Q1

REPORT INFORMATION
  Report Type: Report from Study
  Country: US (occurrence: US)
  Receive Date: 20200904
  Receipt Date: 20210301
  Transmission Date: 20210419
  Serious: Yes (Death, Hospitalization)
  Sender: FDA-Public Use
  Company Number: US-GLAXOSMITHKLINE-US2020GSK172944

PATIENT
  Age: 55 Year
  Sex: Male
  Weight: 67.3 kg

DRUGS (19)
  1. DOSTARLIMAB [Suspect]
     Active Substance: DOSTARLIMAB
     Indication: PANCREATIC CARCINOMA METASTATIC
     Dosage: 500 MG, CYC (ONCE EVERY 3 WEEKS)
     Route: 042
     Dates: start: 20200817, end: 20200817
  2. FUROSEMIDE. [Concomitant]
     Active Substance: FUROSEMIDE
     Dosage: UNK
  3. HYDROMORPHONE [Concomitant]
     Active Substance: HYDROMORPHONE
     Dosage: UNK
  4. PROCHLORPERAZINE EDISYLATE. [Concomitant]
     Active Substance: PROCHLORPERAZINE EDISYLATE
     Dosage: UNK
     Route: 042
  5. DOSTARLIMAB [Suspect]
     Active Substance: DOSTARLIMAB
     Dosage: UNK
     Route: 042
     Dates: end: 20200824
  6. FENTANYL. [Concomitant]
     Active Substance: FENTANYL
     Dosage: UNK
  7. LIDOCAINE. [Concomitant]
     Active Substance: LIDOCAINE
     Dosage: UNK
  8. NIRAPARIB [Suspect]
     Active Substance: NIRAPARIB
     Indication: PANCREATIC CARCINOMA METASTATIC
     Dosage: 200 MG, QD
     Route: 048
     Dates: start: 20200817, end: 20200821
  9. SODIUM CHLORIDE. [Concomitant]
     Active Substance: SODIUM CHLORIDE
     Dosage: UNK
     Route: 042
  10. CLINDAMYCIN. [Concomitant]
     Active Substance: CLINDAMYCIN
     Dosage: UNK
  11. SENNA [Concomitant]
     Active Substance: SENNA LEAF\SENNOSIDES\SENNOSIDES A AND B
     Dosage: UNK
     Route: 048
  12. NIRAPARIB [Suspect]
     Active Substance: NIRAPARIB
     Dosage: UNK
     Route: 048
     Dates: end: 20200824
  13. ENOXAPARIN [Concomitant]
     Active Substance: ENOXAPARIN
     Dosage: UNK
     Route: 058
  14. ALBUMIN HUMAN [Concomitant]
     Active Substance: ALBUMIN HUMAN
     Dosage: UNK %
     Route: 042
  15. CALCITONIN [Concomitant]
     Active Substance: CALCITONIN
     Dosage: 200 UNITS/ML
     Route: 030
  16. DEXTROSE, UNSPECIFIED FORM. [Concomitant]
     Active Substance: DEXTROSE, UNSPECIFIED FORM
     Dosage: UNK
     Route: 042
  17. MIDAZOLAM. [Concomitant]
     Active Substance: MIDAZOLAM
     Dosage: UNK
  18. OMEPRAZOLE. [Concomitant]
     Active Substance: OMEPRAZOLE
     Dosage: UNK
  19. PANCRELIPASE. [Concomitant]
     Active Substance: PANCRELIPASE
     Dosage: UNK

REACTIONS (3)
  - Condition aggravated [Unknown]
  - Malignant neoplasm progression [Fatal]
  - Pancreatic carcinoma metastatic [Unknown]

NARRATIVE: CASE EVENT DATE: 20200820
